FAERS Safety Report 9286326 (Version 2)
Quarter: 2013Q2

REPORT INFORMATION
  Report Type: Spontaneous
  Country: JP (occurrence: JP)
  Receive Date: 20130513
  Receipt Date: 20130522
  Transmission Date: 20140414
  Serious: Yes (Death)
  Sender: FDA-Public Use
  Company Number: JP-PFIZER INC-2013143302

PATIENT
  Age: 50 Year
  Sex: Female
  Weight: 49 kg

DRUGS (5)
  1. ALDACTONE A [Suspect]
     Indication: CARDIAC FAILURE CHRONIC
     Dosage: 50 MG, DAILY
     Route: 048
  2. ENALAPRIL MALEATE [Suspect]
     Indication: CARDIAC FAILURE CHRONIC
     Dosage: 2.5 MG, DAILY
  3. FUROSEMIDE [Suspect]
     Indication: CARDIAC FAILURE CHRONIC
  4. NITROGLYCERIN [Suspect]
     Indication: CARDIAC FAILURE CHRONIC
  5. AMIODARONE [Suspect]

REACTIONS (3)
  - Syncope [Fatal]
  - Cold sweat [Unknown]
  - Nausea [Unknown]
